FAERS Safety Report 25812775 (Version 2)
Quarter: 2025Q4

REPORT INFORMATION
  Report Type: Spontaneous
  Country: US (occurrence: US)
  Receive Date: 20250917
  Receipt Date: 20251211
  Transmission Date: 20260117
  Serious: No
  Sender: SANOFI AVENTIS
  Company Number: US-SA-2025SA276409

PATIENT
  Sex: Female
  Weight: 89.09 kg

DRUGS (16)
  1. DUPIXENT [Suspect]
     Active Substance: DUPILUMAB
     Indication: Neurodermatitis
     Dosage: 300 MG, QOW
     Route: 058
  2. FERROUS SULFATE [Concomitant]
     Active Substance: FERROUS SULFATE
  3. METFORMIN HYDROCHLORIDE [Concomitant]
     Active Substance: METFORMIN HYDROCHLORIDE
  4. OXYGEN [Concomitant]
     Active Substance: OXYGEN
  5. OZEMPIC [Concomitant]
     Active Substance: SEMAGLUTIDE
  6. ASPIRIN [Concomitant]
     Active Substance: ASPIRIN
  7. FARXIGA [Concomitant]
     Active Substance: DAPAGLIFLOZIN PROPANEDIOL
  8. FENOFIBRATE [Concomitant]
     Active Substance: FENOFIBRATE
  9. LEVOTHYROXINE SODIUM [Concomitant]
     Active Substance: LEVOTHYROXINE SODIUM
  10. VALSARTAN [Concomitant]
     Active Substance: VALSARTAN
  11. TOUJEO MAX [Concomitant]
     Active Substance: INSULIN GLARGINE
  12. EZETIMIBE [Concomitant]
     Active Substance: EZETIMIBE
  13. VITAMIN D2 [Concomitant]
     Active Substance: ERGOCALCIFEROL
  14. HUMALOG [Concomitant]
     Active Substance: INSULIN LISPRO
  15. DESVENLAFAXINE [Concomitant]
     Active Substance: DESVENLAFAXINE
  16. ROSUVASTATIN CALCIUM [Concomitant]
     Active Substance: ROSUVASTATIN CALCIUM

REACTIONS (4)
  - Pruritus [Unknown]
  - Drug ineffective [Unknown]
  - Incorrect dose administered [Unknown]
  - Therapeutic product effect delayed [Unknown]
